FAERS Safety Report 12375998 (Version 1)
Quarter: 2016Q2

REPORT INFORMATION
  Report Type: Spontaneous
  Country: US (occurrence: None)
  Receive Date: 20160516
  Receipt Date: 20160516
  Transmission Date: 20160815
  Serious: Yes (Disabling)
  Sender: FDA-Public Use
  Company Number: None

PATIENT
  Age: 16 Year
  Sex: Female
  Weight: 47.63 kg

DRUGS (2)
  1. CENTRUM WOMEN [Concomitant]
     Active Substance: VITAMINS
  2. CIPROFLOXACIN. [Suspect]
     Active Substance: CIPROFLOXACIN
     Indication: URINARY TRACT INFECTION
     Dosage: 6 TABLETS TWICE A DAY
     Route: 048
     Dates: start: 20160228, end: 20160302

REACTIONS (5)
  - Pain in extremity [None]
  - Educational problem [None]
  - Insomnia [None]
  - Arthralgia [None]
  - Dizziness [None]

NARRATIVE: CASE EVENT DATE: 20160228
